FAERS Safety Report 14405914 (Version 1)
Quarter: 2018Q1

REPORT INFORMATION
  Report Type: Spontaneous
  Country: IN (occurrence: IN)
  Receive Date: 20180118
  Receipt Date: 20180118
  Transmission Date: 20180509
  Serious: Yes (Other)
  Sender: FDA-Public Use
  Company Number: IN-PFIZER INC-2018019369

PATIENT
  Age: 56 Year
  Sex: Male

DRUGS (11)
  1. FOLIC ACID. [Concomitant]
     Active Substance: FOLIC ACID
     Dosage: UNK
  2. ACIVIR /00587301/ [Concomitant]
     Dosage: 400 MG, UNK
  3. VITCOFOL /01612801/ [Concomitant]
     Dosage: UNK (2CC OD X 7 DAYS)
     Route: 030
  4. DANAZOL. [Concomitant]
     Active Substance: DANAZOL
     Dosage: UNK, 200 (UNKNOWN UNIT), 3X/DAY
  5. TRANEXA [Concomitant]
     Dosage: 500 MG, 3X/DAY (1WEEK)
  6. ATGAM [Suspect]
     Active Substance: EQUINE THYMOCYTE IMMUNE GLOBULIN
     Indication: APLASTIC ANAEMIA
     Dosage: UNK (37 VIALS OF ATGAM 250 MG)
     Route: 042
     Dates: start: 20180111
  7. RANTAC [Concomitant]
     Active Substance: RANITIDINE HYDROCHLORIDE
     Dosage: UNK, 150 (UNKNOWN UNIT) 2X/DAY
  8. FORCAN [Concomitant]
     Dosage: 200 MG, UNK
  9. CYCLOSPORINE. [Concomitant]
     Active Substance: CYCLOSPORINE
     Dosage: 100 MG, UNK
  10. SEPTRAN /00086101/ [Concomitant]
     Dosage: UNK
  11. CYCLOSPORINE. [Concomitant]
     Active Substance: CYCLOSPORINE
     Dosage: 25 MG, UNK

REACTIONS (4)
  - Asthenia [Unknown]
  - Fatigue [Unknown]
  - Arthralgia [Unknown]
  - Haematemesis [Unknown]
